FAERS Safety Report 15667926 (Version 1)
Quarter: 2018Q4

REPORT INFORMATION
  Report Type: Spontaneous
  Country: RO (occurrence: RO)
  Receive Date: 20181128
  Receipt Date: 20181128
  Transmission Date: 20190205
  Serious: Yes (Hospitalization)
  Sender: FDA-Public Use
  Company Number: RO-MYLANLABS-2018M1087625

PATIENT
  Age: 54 Year
  Sex: Male

DRUGS (4)
  1. INDAPAMIDE. [Concomitant]
     Active Substance: INDAPAMIDE
     Indication: HYPERTENSION
     Dosage: 1.5 MILLIGRAM, QD (1X/DAY)
     Route: 065
  2. LERCANIDIPINE [Concomitant]
     Active Substance: LERCANIDIPINE
     Dosage: 20 MILLIGRAM, QD (1X/DAY)
     Route: 065
  3. ATORVASTATIN MYLAN [Suspect]
     Active Substance: ATORVASTATIN
     Indication: DYSLIPIDAEMIA
     Dosage: 20 MILLIGRAM, QD (1X/DAY)
     Route: 065
  4. NEBIVOLOL. [Concomitant]
     Active Substance: NEBIVOLOL
     Indication: HYPERTENSION
     Dosage: 2.5 MILLIGRAM, QD (1X/DAY)
     Route: 065

REACTIONS (3)
  - Rash [Unknown]
  - Rosai-Dorfman syndrome [Unknown]
  - Pruritus [Unknown]
